FAERS Safety Report 12785181 (Version 1)
Quarter: 2016Q3

REPORT INFORMATION
  Report Type: Spontaneous
  Country: US (occurrence: US)
  Receive Date: 20160927
  Receipt Date: 20160927
  Transmission Date: 20161109
  Serious: No
  Sender: FDA-Public Use
  Company Number: US-TEIKOKU PHARMA USA-TPU2016-00593

PATIENT
  Age: 58 Year
  Sex: Male
  Weight: 90.35 kg

DRUGS (2)
  1. LIDOCAINE PATCH [Suspect]
     Active Substance: LIDOCAINE
     Indication: LIMB INJURY
     Dosage: ONE PATCH ON EACH SHOULDER TWICE DAILY
     Route: 061
     Dates: start: 20160903, end: 20160905
  2. MORPHINE SULFATE. [Concomitant]
     Active Substance: MORPHINE SULFATE
     Indication: PAIN
     Route: 042
     Dates: start: 20160903, end: 20160905

REACTIONS (1)
  - Inappropriate schedule of drug administration [Unknown]
